FAERS Safety Report 5186567-7 (Version None)
Quarter: 2006Q4

REPORT INFORMATION
  Report Type: 
  Country: None (occurrence: None)
  Receive Date: 20061213
  Receipt Date: 20061207
  Transmission Date: 20070319
  Serious: Yes (Life-Threatening, Hospitalization, Disabling)
  Sender: FDA-Public Use
  Company Number: TPA2006A02184

PATIENT
  Age: 82 Year
  Sex: Female
  Weight: 73.9363 kg

DRUGS (10)
  1. ACTOS [Suspect]
     Indication: DIABETES MELLITUS NON-INSULIN-DEPENDENT
     Dosage: 30 MG, 1 IN 1 D, PER ORAL
     Route: 048
     Dates: start: 20060417, end: 20060809
  2. DIOVAN HCT [Concomitant]
  3. VALSARTAN [Concomitant]
  4. ASPIRIN [Concomitant]
  5. FLUVASTATIN SODIUM                     (FLUVASTATIN SODIUM) [Concomitant]
  6. ATENOLOL [Concomitant]
  7. CITALOPRAM HYDROBROMIDE [Concomitant]
  8. SALBUTAMOL SULPHATE            (SALBUTAMOL SULFATE) [Concomitant]
  9. OCUVITE                (ASCORBIC ACID, TOCOPHEROL, RETINOL) [Concomitant]
  10. AVANDIA [Concomitant]

REACTIONS (6)
  - CARDIAC FAILURE CONGESTIVE [None]
  - CONDITION AGGRAVATED [None]
  - DYSPNOEA EXERTIONAL [None]
  - FLUID RETENTION [None]
  - OEDEMA PERIPHERAL [None]
  - ORTHOPNOEA [None]
